FAERS Safety Report 23572696 (Version 1)
Quarter: 2024Q1

REPORT INFORMATION
  Report Type: Spontaneous
  Country: US (occurrence: US)
  Receive Date: 20240227
  Receipt Date: 20240227
  Transmission Date: 20240409
  Serious: No
  Sender: FDA-Public Use
  Company Number: US-AVADEL CNS PHARMACEUTICALS, LLC-2024AVA00006

PATIENT
  Age: 54 Year
  Sex: Female
  Weight: 52.154 kg

DRUGS (6)
  1. LUMRYZ [Suspect]
     Active Substance: SODIUM OXYBATE
     Indication: Narcolepsy
     Dosage: 4.5 G, 1X/DAY NIGHTLY
     Route: 048
     Dates: start: 202311, end: 202311
  2. LUMRYZ [Suspect]
     Active Substance: SODIUM OXYBATE
     Indication: Cataplexy
  3. ESTRADIOL [Concomitant]
     Active Substance: ESTRADIOL
     Dosage: 10 ?G, 2X/WEEK
     Route: 067
  4. VITAMIN B12 [Concomitant]
     Active Substance: CYANOCOBALAMIN
     Dosage: 500 ?G, 1X/DAY (SOMETIMES MORE THAN ONCE DAILY)
     Route: 060
  5. MODAFINIL [Concomitant]
     Active Substance: MODAFINIL
     Dosage: 200 MG, 1X/DAY
  6. METHYLPHENIDATE [Concomitant]
     Active Substance: METHYLPHENIDATE
     Dosage: 20 MG, ^PROBABLY^ 5X/DAY

REACTIONS (6)
  - Middle insomnia [Recovered/Resolved]
  - Discomfort [Recovered/Resolved]
  - Balance disorder [Recovered/Resolved]
  - Nocturia [Recovered/Resolved]
  - Hyperhidrosis [Recovered/Resolved]
  - Feeling drunk [Recovered/Resolved]

NARRATIVE: CASE EVENT DATE: 20231101
